FAERS Safety Report 7936280-5 (Version None)
Quarter: 2011Q4

REPORT INFORMATION
  Report Type: 
  Country: None (occurrence: None)
  Receive Date: 20111123
  Receipt Date: 20111114
  Transmission Date: 20120403
  Serious: Yes (Hospitalization)
  Sender: FDA-Public Use
  Company Number: US-BAYER-201039563NA

PATIENT
  Age: 41 Year
  Sex: Female
  Weight: 104 kg

DRUGS (6)
  1. DIOVAN [Concomitant]
     Route: 048
  2. PROTONIX [Concomitant]
     Route: 048
  3. YASMIN [Suspect]
     Indication: ORAL CONTRACEPTION
     Route: 048
     Dates: start: 20040401, end: 20040715
  4. CLARINEX [Concomitant]
     Route: 048
  5. YASMIN [Suspect]
     Indication: PREMENSTRUAL SYNDROME
  6. MINOCIN [Concomitant]
     Route: 048

REACTIONS (1)
  - DEEP VEIN THROMBOSIS [None]
